FAERS Safety Report 17538469 (Version 1)
Quarter: 2020Q1

REPORT INFORMATION
  Report Type: Spontaneous
  Country: US (occurrence: US)
  Receive Date: 20200305
  Receipt Date: 20200305
  Transmission Date: 20200409
  Serious: Yes (Hospitalization)
  Sender: FDA-Public Use
  Company Number: None

PATIENT
  Age: 66 Year
  Sex: Male

DRUGS (2)
  1. ABLRATERONE ACETATE 250MG TAB [Suspect]
     Active Substance: ABIRATERONE ACETATE
     Indication: PROSTATE CANCER
     Dosage: ?          OTHER DOSE:1000 MG (TOTAL DOSE);?
     Route: 048
     Dates: start: 20200127
  2. LUPRON DEPOT [Concomitant]
     Active Substance: LEUPROLIDE ACETATE

REACTIONS (5)
  - Vomiting [None]
  - Diarrhoea [None]
  - Anaemia [None]
  - Haemoglobin decreased [None]
  - Retching [None]

NARRATIVE: CASE EVENT DATE: 20200226
